FAERS Safety Report 22590880 (Version 1)
Quarter: 2023Q2

REPORT INFORMATION
  Report Type: Report from Study
  Country: US (occurrence: US)
  Receive Date: 20230612
  Receipt Date: 20230612
  Transmission Date: 20230721
  Serious: Yes (Other)
  Sender: FDA-Public Use
  Company Number: US-ASTELLAS-2023US017581

PATIENT
  Sex: Male

DRUGS (1)
  1. ENZALUTAMIDE [Suspect]
     Active Substance: ENZALUTAMIDE
     Indication: Prostate cancer
     Route: 048
     Dates: start: 202304

REACTIONS (5)
  - Leukoplakia oral [Unknown]
  - Fatigue [Unknown]
  - Oral pain [Unknown]
  - Oral mucosal erythema [Unknown]
  - Mouth ulceration [Unknown]
